FAERS Safety Report 11246081 (Version 1)
Quarter: 2015Q3

REPORT INFORMATION
  Report Type: Spontaneous
  Country: GB (occurrence: GB)
  Receive Date: 20150708
  Receipt Date: 20150708
  Transmission Date: 20151125
  Serious: Yes (Other)
  Sender: FDA-Public Use
  Company Number: GB-DEXPHARM-20150752

PATIENT
  Age: 88 Year
  Sex: Female
  Weight: 59 kg

DRUGS (10)
  1. ASPIRIN. [Concomitant]
     Active Substance: ASPIRIN
     Indication: PERIPHERAL VASCULAR DISORDER
     Dates: start: 20150526
  2. LOSARTAN. [Concomitant]
     Active Substance: LOSARTAN
     Indication: HYPERTENSION
     Dosage: MORNING
     Dates: start: 20150126
  3. AMLODIPINE [Concomitant]
     Active Substance: AMLODIPINE BESYLATE
     Indication: HYPERTENSION
     Dosage: MORNING
     Dates: start: 20140908, end: 20150316
  4. FLUCLOXACILLIN [Concomitant]
     Active Substance: FLUCLOXACILLIN
     Dates: start: 20150316, end: 20150323
  5. ATENOLOL. [Concomitant]
     Active Substance: ATENOLOL
     Dosage: MORNING
     Dates: start: 20150113
  6. OMEPRAZOLE. [Suspect]
     Active Substance: OMEPRAZOLE
     Dates: start: 20150601, end: 20150615
  7. DALTEPARIN [Concomitant]
     Active Substance: DALTEPARIN
     Dates: start: 20150316, end: 20150321
  8. PARACETAMOL [Concomitant]
     Active Substance: ACETAMINOPHEN
     Dosage: ONE TO TWO TO BE TAKEN FOUR TIMES A DAY AS REQUIRED
     Dates: start: 20150515
  9. SIMVASTATIN. [Concomitant]
     Active Substance: SIMVASTATIN
     Dosage: EVENING
     Dates: start: 20150113
  10. FELODIPINE. [Concomitant]
     Active Substance: FELODIPINE
     Dates: start: 20150316, end: 20150515

REACTIONS (4)
  - Arthralgia [Recovered/Resolved]
  - Pain [Unknown]
  - Tremor [Unknown]
  - Malaise [Unknown]

NARRATIVE: CASE EVENT DATE: 20150601
